FAERS Safety Report 6101986-X (Version None)
Quarter: 2009Q1

REPORT INFORMATION
  Report Type: 
  Country: None (occurrence: None)
  Receive Date: 20090303
  Receipt Date: 20090303
  Transmission Date: 20090719
  Serious: No
  Sender: FDA-Public Use
  Company Number: None

PATIENT
  Age: 5 Year
  Sex: Male
  Weight: 26.7622 kg

DRUGS (1)
  1. SINGULAIR [Suspect]
     Indication: ASTHMA
     Dosage: 4 MG DAILY PO   1.5 YEARS
     Route: 048
     Dates: start: 20070731, end: 20090131

REACTIONS (2)
  - AGGRESSION [None]
  - MOOD SWINGS [None]
